FAERS Safety Report 6210040-8 (Version None)
Quarter: 2009Q2

REPORT INFORMATION
  Report Type: 
  Country: None (occurrence: None)
  Receive Date: 20090601
  Receipt Date: 20090528
  Transmission Date: 20091009
  Serious: Yes (Death, Hospitalization, Other)
  Sender: FDA-Public Use
  Company Number: PHHY2009BR20889

PATIENT
  Sex: Female

DRUGS (11)
  1. EXELON [Suspect]
     Indication: DEMENTIA ALZHEIMER'S TYPE
     Dosage: 2 CAPSULES DAILY
     Route: 048
     Dates: end: 20090101
  2. FEMARA [Suspect]
     Indication: BREAST CANCER
     Dosage: 1 TABLET DAILY
     Route: 048
  3. EBIXA [Concomitant]
     Dosage: 1 TABLET DAILY
     Route: 048
     Dates: end: 20090101
  4. OMEPRAZOLE [Concomitant]
     Route: 048
  5. DEPAKENE [Concomitant]
     Indication: CONVULSION
     Dosage: 12 ML DAILY
     Route: 048
  6. LOSARTAN POTASSIUM [Concomitant]
     Indication: HYPERTENSION
     Dosage: 2 TABLETS DAILY
     Route: 048
  7. ASPIRIN [Concomitant]
     Indication: BLOOD THROMBOPLASTIN NORMAL
     Dosage: 1 TABLET DAILY
     Route: 048
  8. CLEXANE [Concomitant]
     Indication: THROMBOSIS
     Dosage: 01 APPLICATION DAILY
     Route: 058
  9. HUMECTOL [Concomitant]
     Dosage: 2  TABLETS DAILY
     Route: 048
  10. ULTRACET [Concomitant]
     Indication: ANALGESIA
     Dosage: 2 TABLETS DAILY
     Route: 048
     Dates: start: 20090101, end: 20090301
  11. GUTALAX [Concomitant]
     Indication: CONSTIPATION
     Dosage: 20 DROPS DAILY
     Route: 048

REACTIONS (14)
  - BEDRIDDEN [None]
  - BLOOD PRESSURE DECREASED [None]
  - BRONCHOSPASM [None]
  - CEREBROVASCULAR ACCIDENT [None]
  - COGNITIVE DISORDER [None]
  - DEHYDRATION [None]
  - DYSPHAGIA [None]
  - GENERAL PHYSICAL HEALTH DETERIORATION [None]
  - MALAISE [None]
  - MOTOR DYSFUNCTION [None]
  - RESPIRATORY FAILURE [None]
  - SHOCK [None]
  - SOMNOLENCE [None]
  - SPEECH DISORDER [None]
